FAERS Safety Report 14833907 (Version 1)
Quarter: 2018Q2

REPORT INFORMATION
  Report Type: Spontaneous
  Country: US (occurrence: US)
  Receive Date: 20180501
  Receipt Date: 20180501
  Transmission Date: 20180711
  Serious: No
  Sender: FDA-Public Use
  Company Number: US-ROCHE-1944566

PATIENT
  Sex: Female

DRUGS (6)
  1. NEULASTA [Concomitant]
     Active Substance: PEGFILGRASTIM
     Indication: CERVIX CARCINOMA
     Route: 058
     Dates: start: 20170425
  2. CARBOPLATIN. [Concomitant]
     Active Substance: CARBOPLATIN
     Indication: CERVIX CARCINOMA
     Route: 042
     Dates: start: 20170425
  3. AVASTIN [Suspect]
     Active Substance: BEVACIZUMAB
     Indication: CERVIX CARCINOMA
     Route: 042
     Dates: start: 20170425
  4. FAMOTIDINE. [Concomitant]
     Active Substance: FAMOTIDINE
     Indication: CERVIX CARCINOMA
     Route: 042
     Dates: start: 20170425
  5. GRANISETRON [Concomitant]
     Active Substance: GRANISETRON
     Indication: CERVIX CARCINOMA
     Route: 042
     Dates: start: 20170425
  6. PACLITAXEL. [Concomitant]
     Active Substance: PACLITAXEL
     Indication: CERVIX CARCINOMA
     Route: 042
     Dates: start: 20170425

REACTIONS (2)
  - Dyspnoea [Unknown]
  - Heart rate increased [Unknown]
